FAERS Safety Report 6522418-3 (Version None)
Quarter: 2009Q4

REPORT INFORMATION
  Report Type: 
  Country: None (occurrence: None)
  Receive Date: 20091230
  Receipt Date: 20091217
  Transmission Date: 20100525
  Serious: Yes (Other)
  Sender: FDA-Public Use
  Company Number: AU-ROCHE-668177

PATIENT

DRUGS (2)
  1. AVASTIN [Suspect]
     Indication: DRUG USE FOR UNKNOWN INDICATION
     Route: 065
  2. FOLFIRI REGIMEN [Concomitant]
     Dosage: DRUG NAME REPORTED AS FOLFIRI

REACTIONS (1)
  - BILE DUCT STENOSIS [None]
